FAERS Safety Report 10087538 (Version 1)
Quarter: 2014Q2

REPORT INFORMATION
  Report Type: Spontaneous
  Country: US (occurrence: US)
  Receive Date: 20140418
  Receipt Date: 20140418
  Transmission Date: 20141212
  Serious: No
  Sender: FDA-Public Use
  Company Number: US-PURDUE-USA-2013-0108352

PATIENT
  Sex: Male

DRUGS (4)
  1. OXYCONTIN (NDA 22-272) [Suspect]
     Indication: CEREBROSPINAL FLUID LEAKAGE
     Dosage: 80 MG, TID
     Route: 048
     Dates: start: 20131101
  2. OXYCONTIN (NDA 22-272) [Suspect]
     Dosage: 20 MCG, UNK
     Route: 048
     Dates: start: 201201, end: 201301
  3. OXYCONTIN (NDA 22-272) [Suspect]
     Dosage: 10 MG, UNK
     Route: 048
     Dates: start: 2007, end: 2007
  4. OXYCODONE HYDROCHLORIDE (SIMILAR TO NDA 22-272) [Concomitant]
     Indication: BREAKTHROUGH PAIN
     Dosage: 10 MG, 2 TABLETS UP TO 6 TIMES A DAY
     Route: 048

REACTIONS (4)
  - Drug effect decreased [Unknown]
  - Drug ineffective [Not Recovered/Not Resolved]
  - Intentional product misuse [Unknown]
  - Euphoric mood [Unknown]
